FAERS Safety Report 6366314-3 (Version None)
Quarter: 2009Q3

REPORT INFORMATION
  Report Type: 
  Country: None (occurrence: None)
  Receive Date: 20090921
  Receipt Date: 20090914
  Transmission Date: 20100115
  Serious: Yes (Hospitalization)
  Sender: FDA-Public Use
  Company Number: US-JNJFOC-20090904812

PATIENT
  Sex: Male
  Weight: 102.51 kg

DRUGS (10)
  1. DURAGESIC-100 [Suspect]
     Route: 062
  2. DURAGESIC-100 [Suspect]
     Indication: PAIN
     Route: 062
  3. VALIUM [Concomitant]
     Indication: ANXIETY
     Route: 048
  4. ASPIRIN [Concomitant]
     Indication: CARDIAC DISORDER
     Route: 048
  5. HYDROCHLOROTHIAZIDE [Concomitant]
     Indication: BLOOD PRESSURE
     Dosage: 25/20 MG
     Route: 048
  6. NORCO [Concomitant]
     Indication: PAIN
     Dosage: 10/325 MG
     Route: 048
  7. PREVACID [Concomitant]
     Indication: GASTROOESOPHAGEAL REFLUX DISEASE
     Route: 048
  8. SIMVASTATIN [Concomitant]
     Indication: BLOOD CHOLESTEROL ABNORMAL
     Route: 048
  9. ZETIA [Concomitant]
     Indication: BLOOD CHOLESTEROL ABNORMAL
     Route: 048
  10. XOPENEX [Concomitant]
     Indication: MESOTHELIOMA
     Dosage: AS NEEDED
     Route: 055

REACTIONS (5)
  - ABNORMAL BEHAVIOUR [None]
  - CONSTIPATION [None]
  - INSOMNIA [None]
  - INTERVERTEBRAL DISC COMPRESSION [None]
  - WRONG TECHNIQUE IN DRUG USAGE PROCESS [None]
